FAERS Safety Report 24591835 (Version 1)
Quarter: 2024Q4

REPORT INFORMATION
  Report Type: Spontaneous
  Country: US (occurrence: US)
  Receive Date: 20241108
  Receipt Date: 20241108
  Transmission Date: 20250114
  Serious: No
  Sender: BRISTOL-MYERS SQUIBB COMPANY
  Company Number: US-BRISTOL-MYERS SQUIBB COMPANY-2024-174482

PATIENT
  Age: 68 Year
  Sex: Female

DRUGS (2)
  1. ELIQUIS [Suspect]
     Active Substance: APIXABAN
     Indication: Atrial fibrillation
     Dosage: DOSE : 5MG;     FREQ : TWICE A DAY
     Route: 048
     Dates: start: 202408
  2. ELIQUIS [Suspect]
     Active Substance: APIXABAN
     Dosage: DOSE: 2.5MG; FREQ: TWICE A DAY
     Route: 048
     Dates: start: 202408

REACTIONS (6)
  - Headache [Unknown]
  - Dizziness [Unknown]
  - Muscle spasms [Unknown]
  - Muscle tightness [Unknown]
  - Eye disorder [Unknown]
  - Drug hypersensitivity [Unknown]

NARRATIVE: CASE EVENT DATE: 20240801
